FAERS Safety Report 16188667 (Version 1)
Quarter: 2019Q2

REPORT INFORMATION
  Report Type: Spontaneous
  Country: US (occurrence: US)
  Receive Date: 20190412
  Receipt Date: 20190412
  Transmission Date: 20190711
  Serious: Yes (Other)
  Sender: FDA-Public Use
  Company Number: US-VISTAPHARM, INC.-VER201904-000120

PATIENT
  Age: 31 Year
  Sex: Female

DRUGS (2)
  1. METHADONE [Suspect]
     Active Substance: METHADONE HYDROCHLORIDE
     Indication: PRODUCT USED FOR UNKNOWN INDICATION
     Dosage: 100 MG
  2. METHADONE [Suspect]
     Active Substance: METHADONE HYDROCHLORIDE
     Dosage: 12 MG; DOSE IS DECREASED BY 1 MG EVERY THURSDAY
     Route: 048
     Dates: start: 20190301

REACTIONS (5)
  - Urticaria [Not Recovered/Not Resolved]
  - Dysphonia [Not Recovered/Not Resolved]
  - Choking [Not Recovered/Not Resolved]
  - Pruritus [Unknown]
  - Dyspnoea [Not Recovered/Not Resolved]

NARRATIVE: CASE EVENT DATE: 20190329
